FAERS Safety Report 6998119-4 (Version None)
Quarter: 2010Q3

REPORT INFORMATION
  Report Type: 
  Country: None (occurrence: None)
  Receive Date: 20100920
  Receipt Date: 20100517
  Transmission Date: 20110219
  Serious: Yes (Hospitalization, Disabling)
  Sender: FDA-Public Use
  Company Number: US-ASTRAZENECA-2007UW08988

PATIENT
  Sex: Female

DRUGS (11)
  1. SEROQUEL [Suspect]
     Route: 048
     Dates: start: 20050624
  2. CYPROHEPTADINE HCL [Concomitant]
     Dosage: 4 MG, 10 MG
     Dates: start: 20050518
  3. FAMOTIDINE [Concomitant]
     Dates: start: 20050518
  4. ACETAMINOPHEN W/ PROPOXYPHENE HCL [Concomitant]
     Dosage: 100-65
     Dates: start: 20050521
  5. HYDROCODONE BITARTRATE AND ACETAMINOPHEN [Concomitant]
     Dosage: 7.5-75
     Dates: start: 20050521
  6. CARISOPRODOL [Concomitant]
     Dates: start: 20050524
  7. LORAZEPAM [Concomitant]
     Dates: start: 20050624
  8. FERROUS SULFATE [Concomitant]
     Dates: start: 20050624
  9. FOLIC ACID [Concomitant]
     Dates: start: 20050624
  10. LEXAPRO [Concomitant]
     Dates: start: 20050624
  11. BACLOFEN [Concomitant]
     Dates: start: 20050707

REACTIONS (3)
  - DIABETES MELLITUS [None]
  - DIABETIC KETOACIDOSIS [None]
  - HYPERGLYCAEMIA [None]
